FAERS Safety Report 4489908-9 (Version None)
Quarter: 2004Q4

REPORT INFORMATION
  Report Type: 
  Country: None (occurrence: None)
  Receive Date: 20041026
  Receipt Date: 20041011
  Transmission Date: 20050328
  Serious: Yes (Disabling)
  Sender: FDA-Public Use
  Company Number: 2004GB02252

PATIENT
  Age: 51 Year
  Sex: Male
  Weight: 91 kg

DRUGS (10)
  1. DEPO-MEDRONE W/ LIDOCAINE [Suspect]
     Indication: PLANTAR FASCIITIS
     Dosage: 80 MG ONCE
     Dates: start: 20040617
  2. OMEPRAZOLE [Concomitant]
  3. CARBAMAZEPINE [Concomitant]
  4. BUMETANIDE [Concomitant]
  5. PERINDOPRIL [Concomitant]
  6. SOTALOL HCL [Concomitant]
  7. PANCREX [Concomitant]
  8. GAVISCON [Concomitant]
  9. TRAMADOL [Concomitant]
  10. DIHYDROCODEINE [Concomitant]

REACTIONS (1)
  - ECZEMA WEEPING [None]
